FAERS Safety Report 9139905 (Version 1)
Quarter: 2013Q1

REPORT INFORMATION
  Report Type: Spontaneous
  Country: US (occurrence: US)
  Receive Date: 20130305
  Receipt Date: 20130305
  Transmission Date: 20140127
  Serious: Yes (Other)
  Sender: FDA-Public Use
  Company Number: US-JNJFOC-20130300109

PATIENT
  Sex: Male

DRUGS (7)
  1. TYLOX [Suspect]
     Indication: NERVE INJURY
     Route: 048
     Dates: start: 2009, end: 2012
  2. TYLOX [Suspect]
     Indication: NERVE INJURY
     Route: 048
     Dates: start: 1995, end: 2009
  3. HYDROCODONE [Suspect]
     Indication: MUSCLE SPASMS
     Route: 065
     Dates: start: 2010, end: 2010
  4. ANTI-REJECTION DRUGS [Concomitant]
     Indication: PANCREAS TRANSPLANT
     Dates: start: 19941203
  5. ANTI-REJECTION DRUGS [Concomitant]
     Indication: RENAL TRANSPLANT
     Dates: start: 19941203
  6. CELLCEPT [Concomitant]
     Indication: PANCREAS TRANSPLANT
     Dates: start: 19941203
  7. CELLCEPT [Concomitant]
     Indication: RENAL TRANSPLANT
     Dates: start: 19941203

REACTIONS (2)
  - Muscle spasms [Recovered/Resolved]
  - Atrial fibrillation [Not Recovered/Not Resolved]
